FAERS Safety Report 8763259 (Version 2)
Quarter: 2012Q4

REPORT INFORMATION
  Report Type: Spontaneous
  Country: None (occurrence: None)
  Receive Date: 20120827
  Receipt Date: 20120830
  Transmission Date: 20130627
  Serious: Yes (Death, Life-Threatening, Other)
  Sender: FDA-Public Use
  Company Number: AUR-APL-2012-03592

PATIENT
  Age: 60 Year
  Sex: Female

DRUGS (9)
  1. METFORMIN (METFORMIN) [Suspect]
     Indication: DRUG USE FOR UNKNOWN INDICATION
     Route: 048
     Dates: start: 20100101, end: 20120727
  2. ACETYLSALICYLIC ACID (ACETYLSALICYLIC ACID) [Concomitant]
  3. AMLODIPINE BESILATE (AMLODIPINE BESILATE) [Concomitant]
  4. BISOPROLOL HEMIFUMARATE (BISOPROLOL HEMIFUMARATE) [Concomitant]
  5. ENALAPRIL MALEATE (ENALAPRIL MALEATE) [Concomitant]
  6. FUROSEMIDE (FUROSEMIDE) [Concomitant]
  7. PANTOPRAZOLE SODIUM (PANTOPRAZOLE SODIUM) [Concomitant]
  8. PROBIOTIC (LACTOBACILLUS REUTERI) [Concomitant]
  9. STATINS [Concomitant]

REACTIONS (10)
  - Toxicity to various agents [None]
  - PO2 decreased [None]
  - Azotaemia [None]
  - Aspartate aminotransferase increased [None]
  - Alanine aminotransferase increased [None]
  - Lactic acidosis [None]
  - Activated partial thromboplastin time prolonged [None]
  - Prothrombin time shortened [None]
  - Blood sodium increased [None]
  - Blood creatine phosphokinase MB increased [None]
